FAERS Safety Report 16258780 (Version 1)
Quarter: 2019Q2

REPORT INFORMATION
  Report Type: Spontaneous
  Country: ES (occurrence: ES)
  Receive Date: 20190501
  Receipt Date: 20190501
  Transmission Date: 20190711
  Serious: Yes (Hospitalization)
  Sender: FDA-Public Use
  Company Number: ES-TEVA-2019-ES-1043382

PATIENT
  Age: 58 Year
  Sex: Female

DRUGS (4)
  1. PROPRANOLOL (2218A) [Concomitant]
     Route: 048
  2. AMOXICILINA (108A) [Suspect]
     Active Substance: AMOXICILLIN
     Indication: TOOTH ABSCESS
     Route: 048
     Dates: start: 20190205, end: 20190211
  3. ATORVASTATINA (7400A) [Concomitant]
     Active Substance: ATORVASTATIN
     Route: 048
  4. PREZISTA 800 MG COMPRIMIDOS RECUBIERTOS CON PELICULA, 30 COMPRIMIDOS [Concomitant]
     Indication: HIV INFECTION
     Dosage: 800 MILLIGRAM DAILY;
     Route: 048

REACTIONS (2)
  - Hypernatraemia [Recovered/Resolved]
  - Clostridium difficile colitis [Recovered/Resolved]

NARRATIVE: CASE EVENT DATE: 20190207
